FAERS Safety Report 22977585 (Version 2)
Quarter: 2023Q4

REPORT INFORMATION
  Report Type: Report from Study
  Country: MX (occurrence: MX)
  Receive Date: 20230925
  Receipt Date: 20231006
  Transmission Date: 20240109
  Serious: Yes (Hospitalization, Other)
  Sender: FDA-Public Use
  Company Number: MX-002147023-NVSC2023MX206008

PATIENT
  Age: 62 Year
  Sex: Male
  Weight: 81.5 kg

DRUGS (4)
  1. ENTRESTO [Suspect]
     Active Substance: SACUBITRIL\VALSARTAN
     Indication: Hypertension
     Dosage: 1 DOSAGE FORM, BID (100MG) (IN THE MORNING AND AT NIGHT)
     Route: 048
     Dates: start: 201802, end: 201905
  2. ENTRESTO [Suspect]
     Active Substance: SACUBITRIL\VALSARTAN
     Dosage: 1.5 DOSAGE FORM (1 IN THE MORNING AND HALF AT NIGHT)
     Route: 048
     Dates: start: 201905
  3. JARDIANCE [Concomitant]
     Active Substance: EMPAGLIFLOZIN
     Indication: Diabetes mellitus
     Dosage: 1 DOSAGE FORM, QD (START DATE: 4 YEARS AGO)
     Route: 048
  4. METFORMIN [Concomitant]
     Active Substance: METFORMIN HYDROCHLORIDE
     Indication: Diabetes mellitus
     Dosage: 1 DOSAGE FORM, BID (START DATE: 4 YEARS AGO) IN THE MORNING AND AT NIGHT
     Route: 048

REACTIONS (5)
  - Myocardial infarction [Recovering/Resolving]
  - Cardiac arrest [Recovering/Resolving]
  - Product use in unapproved indication [Not Recovered/Not Resolved]
  - Wrong technique in product usage process [Not Recovered/Not Resolved]
  - Prescribed underdose [Not Recovered/Not Resolved]

NARRATIVE: CASE EVENT DATE: 20180201
